FAERS Safety Report 8211456-0 (Version None)
Quarter: 2012Q1

REPORT INFORMATION
  Report Type: 
  Country: None (occurrence: None)
  Receive Date: 20120315
  Receipt Date: 20120314
  Transmission Date: 20120608
  Serious: Yes (Death)
  Sender: FDA-Public Use
  Company Number: PL-NAPPMUNDI-DEU-2012-0008724

PATIENT
  Age: 72 Year
  Sex: Female
  Weight: 55 kg

DRUGS (4)
  1. MORPHINE SULFATE [Suspect]
     Indication: CANCER PAIN
     Dosage: 40 MG, DAILY
     Route: 048
     Dates: start: 20111206, end: 20120119
  2. APAP TAB [Suspect]
     Indication: CANCER PAIN
     Dosage: 1500 MG, DAILY
     Route: 048
     Dates: start: 20111001, end: 20120119
  3. OXYCODONE HCL [Suspect]
     Indication: CANCER PAIN
     Dosage: 40 MG, DAILY
     Route: 048
     Dates: start: 20111206, end: 20120119
  4. DICLOFENAC SODIUM [Suspect]
     Indication: CANCER PAIN
     Dosage: 150 MG, DAILY
     Route: 048
     Dates: start: 20111212, end: 20120119

REACTIONS (1)
  - NEOPLASM MALIGNANT [None]
